FAERS Safety Report 7302144-3 (Version None)
Quarter: 2011Q1

REPORT INFORMATION
  Report Type: 
  Country: None (occurrence: None)
  Receive Date: 20110218
  Receipt Date: 20110215
  Transmission Date: 20110831
  Serious: Yes (Other)
  Sender: FDA-Public Use
  Company Number: JP-MERCK-1102USA01929

PATIENT
  Age: 57 Year
  Sex: Female

DRUGS (2)
  1. SINEMET [Suspect]
     Indication: RESTLESS LEGS SYNDROME
     Dosage: DIVIDED DOSE FREQUENCY UNKNOWN FROM 1000MG/A DAY
     Route: 048
  2. SINEMET [Suspect]
     Dosage: DIVIDED DOSE FREQUENCY UNKNOWN
     Route: 048

REACTIONS (3)
  - CONVULSION [None]
  - TREMOR [None]
  - HYPOAESTHESIA [None]
